FAERS Safety Report 6019565-1 (Version None)
Quarter: 2008Q4

REPORT INFORMATION
  Report Type: 
  Country: None (occurrence: None)
  Receive Date: 20081224
  Receipt Date: 20081216
  Transmission Date: 20090506
  Serious: Yes (Other)
  Sender: FDA-Public Use
  Company Number: PHHY2008CA31600

PATIENT

DRUGS (4)
  1. DIOVAN [Suspect]
     Indication: HYPERTENSION
  2. BETA BLOCKING AGENTS [Concomitant]
  3. DIURETICS [Concomitant]
  4. ASPIRIN [Concomitant]
     Dosage: UNK

REACTIONS (4)
  - ARTERIOGRAM CORONARY ABNORMAL [None]
  - CORONARY ARTERY BYPASS [None]
  - CORONARY ARTERY INSUFFICIENCY [None]
  - HYPERTENSION [None]
